FAERS Safety Report 8623051-X (Version None)
Quarter: 2012Q3

REPORT INFORMATION
  Report Type: 
  Country: None (occurrence: None)
  Receive Date: 20120827
  Receipt Date: 20120821
  Transmission Date: 20120928
  Serious: Yes (Hospitalization)
  Sender: FDA-Public Use
  Company Number: US-COVIDIEN/TYCO HEALTHCARE/MALLINCKRODT-T201203221

PATIENT
  Sex: Male

DRUGS (1)
  1. HYDROMORPHONE HYDROCHLORIDE [Suspect]
     Indication: BACK PAIN
     Dosage: 4 MG, Q 6 HRS, PRN

REACTIONS (3)
  - MYASTHENIA GRAVIS CRISIS [None]
  - RESPIRATORY FAILURE [None]
  - PNEUMONIA [None]
